FAERS Safety Report 19481065 (Version 1)
Quarter: 2021Q2

REPORT INFORMATION
  Report Type: Spontaneous
  Country: US (occurrence: US)
  Receive Date: 20210630
  Receipt Date: 20210630
  Transmission Date: 20210717
  Serious: Yes (Hospitalization)
  Sender: FDA-Public Use
  Company Number: None

PATIENT
  Age: 74 Year
  Sex: Male
  Weight: 107.5 kg

DRUGS (14)
  1. CEPHALEXIN 500MG CAPSULES [Suspect]
     Active Substance: CEPHALEXIN
     Indication: BACTERIAL INFECTION
     Dosage: ?          QUANTITY:1 BY MOUTH BID QD;?
     Route: 048
     Dates: start: 20210614, end: 20210614
  2. MULTIVITAMIN [Concomitant]
     Active Substance: VITAMINS
  3. DORSOLAMIDE [Concomitant]
  4. LATANOPROST. [Concomitant]
     Active Substance: LATANOPROST
  5. METOPROPEL TART [Concomitant]
  6. FUROSEMIDE. [Concomitant]
     Active Substance: FUROSEMIDE
  7. WARFARIN [Concomitant]
     Active Substance: WARFARIN
  8. CLOPIDOGREL [Concomitant]
     Active Substance: CLOPIDOGREL BISULFATE
  9. ATORVASTTIN [Concomitant]
     Active Substance: ATORVASTATIN
  10. PROAIR INHALER [Concomitant]
     Active Substance: ALBUTEROL SULFATE
  11. FAMOTIDINE. [Concomitant]
     Active Substance: FAMOTIDINE
  12. VITAMIN B?6 [Concomitant]
     Active Substance: PYRIDOXINE
  13. MELATIONIN [Concomitant]
  14. ACETAMINOPHEN. [Concomitant]
     Active Substance: ACETAMINOPHEN

REACTIONS (4)
  - Chest discomfort [None]
  - Hyperhidrosis [None]
  - Dyspnoea [None]
  - Vomiting [None]

NARRATIVE: CASE EVENT DATE: 20210614
